FAERS Safety Report 9425274 (Version 1)
Quarter: 2013Q3

REPORT INFORMATION
  Report Type: Spontaneous
  Country: GB (occurrence: GB)
  Receive Date: 20130729
  Receipt Date: 20130729
  Transmission Date: 20140515
  Serious: Yes (Hospitalization, Other)
  Sender: FDA-Public Use
  Company Number: GB-BANPHARM-20131509

PATIENT
  Age: 45 Year
  Sex: Male
  Weight: 95.24 kg

DRUGS (1)
  1. IBUPROFEN UNKNOWN PRODUCT [Suspect]
     Indication: PAIN
     Dosage: 200 MG, 1 DF,
     Route: 048
     Dates: start: 20130624, end: 20130624

REACTIONS (8)
  - Throat tightness [Unknown]
  - Dyspnoea [Recovered/Resolved]
  - Loss of consciousness [Unknown]
  - Throat irritation [Recovered/Resolved]
  - Oropharyngeal pain [Not Recovered/Not Resolved]
  - Paraesthesia [Unknown]
  - Dyspepsia [Recovered/Resolved]
  - Product physical issue [Unknown]
